FAERS Safety Report 19369706 (Version 1)
Quarter: 2021Q2

REPORT INFORMATION
  Report Type: Spontaneous
  Country: US (occurrence: US)
  Receive Date: 20210603
  Receipt Date: 20210603
  Transmission Date: 20210717
  Serious: No
  Sender: FDA-Public Use
  Company Number: US-PFIZER INC-2016321296

PATIENT
  Age: 71 Year
  Sex: Female
  Weight: 78.56 kg

DRUGS (16)
  1. PREMARIN [Concomitant]
     Active Substance: ESTROGENS, CONJUGATED
     Dosage: 1.25 MG, DAILY (TAKE 1 TABLET)
     Route: 048
  2. HYOSCYAMINE. [Concomitant]
     Active Substance: HYOSCYAMINE
     Dosage: 0.125 MG, 4X/DAY (TAKE 1 SL)
     Route: 060
  3. BISOPROLOL /HYDROCHLOROTHIAZID [Concomitant]
     Dosage: 1 DF, DAILY (TAKE 1 TABLET)
     Route: 048
  4. LYRICA [Suspect]
     Active Substance: PREGABALIN
     Indication: FIBROMYALGIA
     Dosage: 150 MG, TWICE A DAY (1 CAPSULE 2 TIMES DAILY)
     Route: 048
     Dates: start: 20160519, end: 20160617
  5. HYDROCHLOROTHIAZIDE. [Concomitant]
     Active Substance: HYDROCHLOROTHIAZIDE
     Dosage: 25 MG, DAILY (TAKE 1 TABLET)
     Route: 048
  6. ACIDOPHILUS [Concomitant]
     Active Substance: LACTOBACILLUS ACIDOPHILUS
     Indication: FIBROMYALGIA
     Dosage: UNK UNK, 1X/DAY (1 Q DAY)
  7. LYRICA [Suspect]
     Active Substance: PREGABALIN
     Indication: BACK PAIN
     Dosage: 150 MG, TWICE A DAY (1 CAPSULE 2 TIMES DAILY)
     Route: 048
  8. TYLENOL WITH CODEINE [Concomitant]
     Active Substance: ACETAMINOPHEN\CODEINE PHOSPHATE
     Dosage: AS NEEDED (TAKE 1 TABLET EVERY 4 ? 6 HOURS AS NEEDED) (TYLENOL 300 MG; CODEINE 30 MG)
     Route: 048
  9. LYRICA [Suspect]
     Active Substance: PREGABALIN
     Indication: MYALGIA
  10. LYRICA [Suspect]
     Active Substance: PREGABALIN
     Indication: PAIN
  11. TRAMADOL. [Concomitant]
     Active Substance: TRAMADOL
     Dosage: AS NEEDED (1?2 TABLET EVERY 6 HOURS AS NEEDED; NOT TO EXCEED 6 PER DAY)
     Route: 048
  12. ALBUTEROL SULFATE. [Concomitant]
     Active Substance: ALBUTEROL SULFATE
     Dosage: 5 MG/ML (2.5 MG/0.5 ML SOLUTION FOR NEBULIZATION; DOSE: 2.5 MG/0.5 ML)
     Dates: start: 20160407, end: 20160607
  13. COENZYME Q10 [Concomitant]
     Active Substance: DIETARY SUPPLEMENT\UBIDECARENONE
     Dosage: 100 MG, 1X/DAY (100 MG?5 UNIT CAPSULE)
  14. MUCINEX D [Concomitant]
     Active Substance: GUAIFENESIN\PSEUDOEPHEDRINE HYDROCHLORIDE
     Dosage: UNK ( 600 MG?60 MG)
     Dates: start: 20160414, end: 20160607
  15. TIZANIDINE. [Concomitant]
     Active Substance: TIZANIDINE
     Indication: BACK PAIN
     Dosage: 4 MG, AS NEEDED (PRN) (TAKE 1/2?1 EVERY (Q) 8 HOURS PRN)
     Route: 048
  16. METAMUCIL [Concomitant]
     Active Substance: PLANTAGO SEED
     Dosage: UNK, DAILY 1 GLASS 8OZ EACH DAY)

REACTIONS (1)
  - Confusional state [Unknown]
